FAERS Safety Report 8362472-X (Version None)
Quarter: 2012Q2

REPORT INFORMATION
  Report Type: 
  Country: None (occurrence: None)
  Receive Date: 20120514
  Receipt Date: 20120514
  Transmission Date: 20120825
  Serious: No
  Sender: FDA-Public Use
  Company Number: None

PATIENT
  Age: 63 Year
  Sex: Male

DRUGS (1)
  1. DULCOLAX [Suspect]
     Indication: COLONOSCOPY
     Dosage: 400 MG ONCE PO
     Route: 048
     Dates: start: 20120508, end: 20120508

REACTIONS (2)
  - WRONG DRUG ADMINISTERED [None]
  - PRODUCT LABEL CONFUSION [None]
